FAERS Safety Report 25097663 (Version 1)
Quarter: 2025Q1

REPORT INFORMATION
  Report Type: Other
  Country: DE (occurrence: DE)
  Receive Date: 20250320
  Receipt Date: 20250320
  Transmission Date: 20250408
  Serious: Yes (Other)
  Sender: ANI
  Company Number: DE-ANIPHARMA-016053

PATIENT
  Sex: Male

DRUGS (41)
  1. PHENYTOIN SODIUM [Suspect]
     Active Substance: PHENYTOIN SODIUM
     Indication: Partial seizures
  2. VALPROIC ACID [Suspect]
     Active Substance: VALPROIC ACID
     Indication: Partial seizures
  3. OXCARBAZEPINE [Suspect]
     Active Substance: OXCARBAZEPINE
     Indication: Partial seizures
  4. ZONISAMIDE [Suspect]
     Active Substance: ZONISAMIDE
     Indication: Partial seizures
  5. PHENOBARBITAL [Concomitant]
     Active Substance: PHENOBARBITAL
     Indication: Partial seizures
  6. CARBAMAZEPINE [Concomitant]
     Active Substance: CARBAMAZEPINE
     Indication: Partial seizures
  7. TOPIRAMATE [Concomitant]
     Active Substance: TOPIRAMATE
     Indication: Partial seizures
  8. AMOBARBITAL [Concomitant]
     Active Substance: AMOBARBITAL
     Indication: Wada test
  9. LEVETIRACETAM [Concomitant]
     Active Substance: LEVETIRACETAM
     Indication: Partial seizures
  10. LAMOTRIGINE [Concomitant]
     Active Substance: LAMOTRIGINE
     Indication: Partial seizures
  11. LACOSAMIDE [Concomitant]
     Active Substance: LACOSAMIDE
     Indication: Partial seizures
  12. TACROLIMUS [Concomitant]
     Active Substance: TACROLIMUS
     Indication: Partial seizures
  13. CENOBAMATE [Concomitant]
     Active Substance: CENOBAMATE
     Indication: Partial seizures
  14. CENOBAMATE [Concomitant]
     Active Substance: CENOBAMATE
     Indication: Rasmussen encephalitis
  15. CENOBAMATE [Concomitant]
     Active Substance: CENOBAMATE
     Indication: Partial seizures
  16. CENOBAMATE [Concomitant]
     Active Substance: CENOBAMATE
     Indication: Rasmussen encephalitis
  17. CENOBAMATE [Concomitant]
     Active Substance: CENOBAMATE
     Indication: Partial seizures
  18. CENOBAMATE [Concomitant]
     Active Substance: CENOBAMATE
     Indication: Rasmussen encephalitis
  19. CENOBAMATE [Concomitant]
     Active Substance: CENOBAMATE
     Indication: Partial seizures
  20. CENOBAMATE [Concomitant]
     Active Substance: CENOBAMATE
     Indication: Rasmussen encephalitis
  21. LAMOTRIGINE [Concomitant]
     Active Substance: LAMOTRIGINE
     Indication: Rasmussen encephalitis
  22. LEVETIRACETAM [Concomitant]
     Active Substance: LEVETIRACETAM
     Indication: Rasmussen encephalitis
  23. PHENOBARBITAL [Concomitant]
     Active Substance: PHENOBARBITAL
     Indication: Rasmussen encephalitis
  24. PHENOBARBITAL [Concomitant]
     Active Substance: PHENOBARBITAL
     Indication: Rasmussen encephalitis
  25. PHENOBARBITAL [Concomitant]
     Active Substance: PHENOBARBITAL
     Indication: Partial seizures
  26. PHENOBARBITAL [Concomitant]
     Active Substance: PHENOBARBITAL
     Indication: Rasmussen encephalitis
  27. PHENOBARBITAL [Concomitant]
     Active Substance: PHENOBARBITAL
     Indication: Partial seizures
  28. TOPIRAMATE [Concomitant]
     Active Substance: TOPIRAMATE
     Indication: Rasmussen encephalitis
  29. PHENYTOIN SODIUM [Suspect]
     Active Substance: PHENYTOIN SODIUM
     Indication: Rasmussen encephalitis
  30. VALPROIC ACID [Suspect]
     Active Substance: VALPROIC ACID
     Indication: Rasmussen encephalitis
  31. OXCARBAZEPINE [Suspect]
     Active Substance: OXCARBAZEPINE
     Indication: Rasmussen encephalitis
  32. ZONISAMIDE [Suspect]
     Active Substance: ZONISAMIDE
     Indication: Rasmussen encephalitis
  33. PHENOBARBITAL [Concomitant]
     Active Substance: PHENOBARBITAL
     Indication: Partial seizures
  34. PHENOBARBITAL [Concomitant]
     Active Substance: PHENOBARBITAL
     Indication: Rasmussen encephalitis
  35. PHENOBARBITAL [Concomitant]
     Active Substance: PHENOBARBITAL
     Indication: Partial seizures
  36. PHENOBARBITAL [Concomitant]
     Active Substance: PHENOBARBITAL
     Indication: Rasmussen encephalitis
  37. PHENOBARBITAL [Concomitant]
     Active Substance: PHENOBARBITAL
     Indication: Partial seizures
  38. PHENOBARBITAL [Concomitant]
     Active Substance: PHENOBARBITAL
     Indication: Rasmussen encephalitis
  39. CARBAMAZEPINE [Concomitant]
     Active Substance: CARBAMAZEPINE
     Indication: Rasmussen encephalitis
  40. TACROLIMUS [Concomitant]
     Active Substance: TACROLIMUS
     Indication: Rasmussen encephalitis
  41. LACOSAMIDE [Concomitant]
     Active Substance: LACOSAMIDE
     Indication: Rasmussen encephalitis

REACTIONS (7)
  - Diplopia [Unknown]
  - Pancreatitis [Unknown]
  - Sedation [Unknown]
  - Dysarthria [Unknown]
  - Ataxia [Unknown]
  - Vision blurred [Unknown]
  - Drug ineffective [Unknown]
